FAERS Safety Report 12617656 (Version 1)
Quarter: 2016Q3

REPORT INFORMATION
  Report Type: Report from Study
  Country: None (occurrence: US)
  Receive Date: 20160803
  Receipt Date: 20160803
  Transmission Date: 20161109
  Serious: Yes (Other)
  Sender: FDA-Public Use
  Company Number: US-TESARO INC.-TS50-00124-2016USA

PATIENT
  Age: 52 Year
  Sex: Female

DRUGS (4)
  1. VARUBI [Suspect]
     Active Substance: ROLAPITANT
     Indication: NAUSEA
     Route: 048
     Dates: start: 20160322
  2. LYNPARZA [Suspect]
     Active Substance: OLAPARIB
     Indication: PRODUCT USED FOR UNKNOWN INDICATION
     Route: 065
  3. CARBOPLATIN. [Suspect]
     Active Substance: CARBOPLATIN
     Indication: PRODUCT USED FOR UNKNOWN INDICATION
     Route: 065
  4. VARUBI [Suspect]
     Active Substance: ROLAPITANT
     Indication: VOMITING

REACTIONS (4)
  - Febrile neutropenia [Unknown]
  - Diarrhoea [Unknown]
  - Platelet count decreased [Unknown]
  - Stomatitis [Unknown]

NARRATIVE: CASE EVENT DATE: 201607
